FAERS Safety Report 6411570-6 (Version None)
Quarter: 2009Q4

REPORT INFORMATION
  Report Type: 
  Country: None (occurrence: None)
  Receive Date: 20091023
  Receipt Date: 20091014
  Transmission Date: 20100525
  Serious: Yes (Hospitalization, Other)
  Sender: FDA-Public Use
  Company Number: US-JNJFOC-20041101099

PATIENT
  Sex: Female

DRUGS (11)
  1. RISPERDAL [Suspect]
     Indication: MENTAL DISORDER
     Route: 048
     Dates: start: 19990101, end: 19990101
  2. RISPERDAL CONSTA [Concomitant]
     Indication: MENTAL DISORDER
     Route: 030
  3. HALDOL [Concomitant]
     Indication: MENTAL DISORDER
     Route: 030
  4. HALDOL TABLETS [Concomitant]
     Indication: MENTAL DISORDER
     Route: 048
  5. BENADRYL [Concomitant]
     Route: 048
     Dates: start: 20040101
  6. LORAZEPAM [Concomitant]
     Route: 048
  7. DIOVAN [Concomitant]
     Indication: HYPERTENSION
     Route: 048
     Dates: start: 20041010
  8. METFORMIN HCL [Concomitant]
     Indication: DIABETES MELLITUS
     Route: 065
     Dates: start: 19990101
  9. NPH INSULIN [Concomitant]
     Indication: DIABETES MELLITUS
     Route: 065
     Dates: start: 19990101
  10. REGULAR INSULIN [Concomitant]
     Indication: DIABETES MELLITUS
     Route: 065
     Dates: start: 19990101
  11. METOPROLOL TARTRATE [Concomitant]
     Indication: HYPERTENSION
     Route: 065

REACTIONS (7)
  - ABORTION SPONTANEOUS [None]
  - CARDIAC FAILURE CONGESTIVE [None]
  - HYPERTENSION [None]
  - HYPOAESTHESIA [None]
  - MENTAL DISORDER [None]
  - OFF LABEL USE [None]
  - TYPE 2 DIABETES MELLITUS [None]
